FAERS Safety Report 8516708-2 (Version None)
Quarter: 2012Q2

REPORT INFORMATION
  Report Type: 
  Country: None (occurrence: None)
  Receive Date: 20120406
  Receipt Date: 20101224
  Transmission Date: 20120825
  Serious: Yes (Hospitalization, Other)
  Sender: FDA-Public Use
  Company Number: PHHY2010US84426

PATIENT
  Age: 85 Year
  Sex: Female
  Weight: 203 kg

DRUGS (5)
  1. ALLOPURINOL [Concomitant]
  2. DIOVAN HCT [Concomitant]
  3. ATENOLOL [Concomitant]
  4. TASIGNA [Suspect]
     Indication: CHRONIC MYELOID LEUKAEMIA
     Dosage: 400 MG, BID, ORAL
     Route: 048
     Dates: start: 20101028, end: 20101115
  5. LASIX [Concomitant]

REACTIONS (1)
  - PANCREATITIS [None]
